FAERS Safety Report 6725338-4 (Version None)
Quarter: 2010Q2

REPORT INFORMATION
  Report Type: 
  Country: None (occurrence: None)
  Receive Date: 20100513
  Receipt Date: 20100513
  Transmission Date: 20101027
  Serious: No
  Sender: FDA-Public Use
  Company Number: None

PATIENT
  Age: 73 Year
  Sex: Female
  Weight: 86.1834 kg

DRUGS (1)
  1. RECLAST [Suspect]
     Dates: start: 20100113

REACTIONS (10)
  - AGGRESSION [None]
  - ASTHENIA [None]
  - BONE PAIN [None]
  - CHILLS [None]
  - DECREASED APPETITE [None]
  - DIZZINESS [None]
  - HALLUCINATION [None]
  - MUSCULOSKELETAL PAIN [None]
  - TREMOR [None]
  - VOMITING [None]
